FAERS Safety Report 8499337-9 (Version None)
Quarter: 2012Q3

REPORT INFORMATION
  Report Type: 
  Country: None (occurrence: None)
  Receive Date: 20120710
  Receipt Date: 20120706
  Transmission Date: 20120928
  Serious: Yes (Life-Threatening, Hospitalization, Disabling, Other)
  Sender: FDA-Public Use
  Company Number: PHFR2012GB003471

PATIENT
  Sex: Female

DRUGS (3)
  1. CITALOPRAM HYDROBROMIDE [Concomitant]
     Indication: ANXIETY
     Dosage: 20 MG, UNK
     Route: 048
  2. CLOZARIL [Suspect]
     Indication: SCHIZOPHRENIA
     Dosage: 400 MG (NIGHT)
     Route: 048
     Dates: start: 20010701
  3. OLANZAPINE [Concomitant]

REACTIONS (4)
  - FLUID INTAKE REDUCED [None]
  - FRACTURE [None]
  - SUICIDE ATTEMPT [None]
  - HYPOPHAGIA [None]
